FAERS Safety Report 4956426-0 (Version None)
Quarter: 2006Q1

REPORT INFORMATION
  Report Type: 
  Country: None (occurrence: None)
  Receive Date: 20060329
  Receipt Date: 20060320
  Transmission Date: 20060701
  Serious: Yes (Hospitalization)
  Sender: FDA-Public Use
  Company Number: DE-JNJFOC-20060305152

PATIENT
  Age: 42 Year
  Sex: Female
  Weight: 68.6 kg

DRUGS (7)
  1. ORTHO EVRA [Suspect]
     Indication: DRUG USE FOR UNKNOWN INDICATION
     Route: 062
  2. NEUROCIL [Suspect]
     Route: 048
  3. NEUROCIL [Suspect]
     Route: 048
  4. NEUROCIL [Suspect]
     Route: 048
  5. VENLAFAXINE HCL [Interacting]
     Route: 048
  6. VENLAFAXINE HCL [Interacting]
     Route: 048
  7. BIFITERAL [Concomitant]

REACTIONS (2)
  - DRUG INTERACTION [None]
  - THROMBOPHLEBITIS [None]
